FAERS Safety Report 11874470 (Version 1)
Quarter: 2015Q4

REPORT INFORMATION
  Report Type: Spontaneous
  Country: US (occurrence: US)
  Receive Date: 20151229
  Receipt Date: 20151229
  Transmission Date: 20160305
  Serious: No
  Sender: FDA-Public Use
  Company Number: PHEH2015US005794

PATIENT
  Age: 20 Year
  Sex: Female

DRUGS (3)
  1. TEGRETOL [Suspect]
     Active Substance: CARBAMAZEPINE
     Indication: SEIZURE
     Dosage: 200 MG, BID
     Route: 065
  2. TOPAMAX [Suspect]
     Active Substance: TOPIRAMATE
     Indication: SEIZURE
     Dosage: 100 MG, BID
     Route: 065
  3. KEPPRA [Suspect]
     Active Substance: LEVETIRACETAM
     Indication: SEIZURE
     Dosage: 1000 MG, BID
     Route: 065

REACTIONS (9)
  - Decreased appetite [Unknown]
  - Feeling abnormal [Unknown]
  - Dysgeusia [Unknown]
  - Aura [Unknown]
  - Fear of disease [Unknown]
  - Memory impairment [Unknown]
  - Somnolence [Unknown]
  - Anger [Unknown]
  - Bradyphrenia [Unknown]
